FAERS Safety Report 17914326 (Version 1)
Quarter: 2020Q2

REPORT INFORMATION
  Report Type: Spontaneous
  Country: FR (occurrence: FR)
  Receive Date: 20200619
  Receipt Date: 20200619
  Transmission Date: 20200714
  Serious: Yes (Life-Threatening)
  Sender: FDA-Public Use
  Company Number: FR-ROCHE-2622011

PATIENT
  Age: 51 Year
  Sex: Female
  Weight: 80.7 kg

DRUGS (6)
  1. LAROXYL [Suspect]
     Active Substance: AMITRIPTYLINE HYDROCHLORIDE
     Indication: POISONING DELIBERATE
     Route: 048
     Dates: start: 20200404, end: 20200404
  2. ZOPICLONE [Suspect]
     Active Substance: ZOPICLONE
     Indication: POISONING DELIBERATE
     Route: 048
     Dates: start: 20200404, end: 20200404
  3. LORMETAZEPAM [Suspect]
     Active Substance: LORMETAZEPAM
     Indication: POISONING DELIBERATE
     Route: 048
     Dates: start: 20200404, end: 20200404
  4. RISPERIDONE. [Suspect]
     Active Substance: RISPERIDONE
     Indication: POISONING DELIBERATE
     Route: 048
     Dates: start: 20200404, end: 20200404
  5. LOXAPINE. [Suspect]
     Active Substance: LOXAPINE
     Indication: POISONING DELIBERATE
     Route: 048
     Dates: start: 20200404, end: 20200404
  6. DIAZEPAM. [Suspect]
     Active Substance: DIAZEPAM
     Indication: POISONING DELIBERATE
     Route: 048
     Dates: start: 20200404, end: 20200404

REACTIONS (2)
  - Haemodynamic instability [Recovered/Resolved]
  - Coma [Recovered/Resolved]

NARRATIVE: CASE EVENT DATE: 20200404
